FAERS Safety Report 9633493 (Version 1)
Quarter: 2013Q4

REPORT INFORMATION
  Report Type: Spontaneous
  Country: US (occurrence: US)
  Receive Date: 20131021
  Receipt Date: 20131021
  Transmission Date: 20140711
  Serious: No
  Sender: FDA-Public Use
  Company Number: US-BAUSCH-BL-2013-000560

PATIENT
  Sex: Female

DRUGS (6)
  1. BEPREVE (BEPOTASTINE BESILATE OPHTHALMIC SOLUTION 1.5%) [Suspect]
     Indication: CONJUNCTIVITIS ALLERGIC
     Dosage: ONE DROP IN EACH EYE TWICE DAILY
     Route: 047
     Dates: start: 201205
  2. BEPREVE (BEPOTASTINE BESILATE OPHTHALMIC SOLUTION 1.5%) [Suspect]
     Indication: RHINITIS
  3. INSULIN LISPRO [Concomitant]
     Indication: TYPE 1 DIABETES MELLITUS
  4. FEXOFENADINE HYDROCHLORIDE [Concomitant]
  5. FLUTICASONE [Concomitant]
  6. LEVOTHYROXINE SODIUM [Concomitant]
     Indication: HYPOTHYROIDISM

REACTIONS (2)
  - Ocular hyperaemia [Recovered/Resolved]
  - Condition aggravated [Recovered/Resolved]
